FAERS Safety Report 10863278 (Version 3)
Quarter: 2015Q2

REPORT INFORMATION
  Report Type: Report from Study
  Country: US (occurrence: US)
  Receive Date: 20150224
  Receipt Date: 20150612
  Transmission Date: 20150821
  Serious: Yes (Life-Threatening, Hospitalization, Other)
  Sender: FDA-Public Use
  Company Number: US-ASTELLAS-2014EU012563

PATIENT
  Age: 45 Year
  Sex: Male
  Weight: 194 kg

DRUGS (40)
  1. MICAFUNGIN [Suspect]
     Active Substance: MICAFUNGIN
     Indication: INFECTION PROPHYLAXIS
     Route: 042
     Dates: start: 20140825, end: 20140911
  2. ONDANSETRON [Concomitant]
     Active Substance: ONDANSETRON
     Indication: PREMEDICATION
     Dosage: 8-MG-ONCE
     Route: 048
     Dates: start: 20140827, end: 20140827
  3. CARVEDILOL. [Concomitant]
     Active Substance: CARVEDILOL
     Indication: HYPERTENSION
     Route: 048
     Dates: start: 20140703, end: 20140904
  4. HYDROCHLOROTHIAZIDE. [Concomitant]
     Active Substance: HYDROCHLOROTHIAZIDE
     Indication: ELECTROCARDIOGRAM QT PROLONGED
  5. ONDANSETRON [Concomitant]
     Active Substance: ONDANSETRON
     Indication: NAUSEA
     Route: 042
     Dates: start: 20140820, end: 20140825
  6. NOVOLOG [Concomitant]
     Active Substance: INSULIN ASPART
     Indication: DIABETES MELLITUS
     Dosage: 0-10-U-TID
     Route: 058
     Dates: start: 20140820, end: 20140912
  7. EMEND [Concomitant]
     Active Substance: APREPITANT
     Indication: PREMEDICATION
  8. LOMOTIL [Concomitant]
     Active Substance: ATROPINE SULFATE\DIPHENOXYLATE HYDROCHLORIDE
     Indication: DIARRHOEA
     Dosage: 2-TABLET-QID
     Route: 048
     Dates: start: 20140831, end: 20140912
  9. OXYCODONE [Concomitant]
     Active Substance: OXYCODONE
     Indication: PAIN
     Dosage: 10-MG-PRN Q6HRS
     Route: 048
     Dates: start: 20140820, end: 20140912
  10. ACYCLOVIR                          /00587301/ [Concomitant]
     Active Substance: ACYCLOVIR
     Indication: INFECTION PROPHYLAXIS
     Route: 048
     Dates: start: 20140820
  11. VALSARTAN. [Concomitant]
     Active Substance: VALSARTAN
     Indication: HYPERTENSION
     Route: 048
     Dates: start: 20140820
  12. LOVENOX [Concomitant]
     Active Substance: ENOXAPARIN SODIUM
     Indication: THROMBOSIS PROPHYLAXIS
     Route: 058
     Dates: start: 20140821, end: 20140912
  13. HYDRALAZINE [Concomitant]
     Active Substance: HYDRALAZINE HYDROCHLORIDE
     Indication: HYPERTENSION
     Dosage: 10-MG-PRN Q6HRS
     Route: 042
     Dates: start: 20140822
  14. ACETAMINOPHEN. [Concomitant]
     Active Substance: ACETAMINOPHEN
     Indication: PREMEDICATION
     Dosage: 650-MG-ONCE
     Route: 048
     Dates: start: 20140827, end: 20140827
  15. DIPHENHYDRAMINE [Concomitant]
     Active Substance: DIPHENHYDRAMINE
     Indication: PREMEDICATION
     Dosage: 25-50-MG-PRN
     Route: 042
     Dates: start: 20140827, end: 20140912
  16. MAALOX ANTACID [Concomitant]
     Active Substance: ALUMINUM HYDROXIDE\DIMETHICONE\MAGNESIUM HYDROXIDE
     Indication: DYSPEPSIA
     Route: 048
     Dates: start: 20140829, end: 20140829
  17. PLACEBO [Suspect]
     Active Substance: UNSPECIFIED INGREDIENT
     Dosage: 1 TABLET, ONCE DAILY
     Route: 048
     Dates: start: 20140929, end: 20141001
  18. VALSARTAN. [Concomitant]
     Active Substance: VALSARTAN
     Indication: ELECTROCARDIOGRAM QT PROLONGED
  19. HYDROCHLOROTHIAZIDE. [Concomitant]
     Active Substance: HYDROCHLOROTHIAZIDE
     Indication: HYPERTENSION
     Route: 048
     Dates: start: 20140820
  20. MELPHALAN [Concomitant]
     Active Substance: MELPHALAN
     Indication: BONE MARROW CONDITIONING REGIMEN
     Dosage: 147 MG, ONCE
     Route: 042
     Dates: start: 20140825, end: 20140825
  21. AMLODIPINE [Concomitant]
     Active Substance: AMLODIPINE BESYLATE
     Indication: HYPERTENSION
     Route: 048
     Dates: start: 20140703
  22. LEVEMIR [Concomitant]
     Active Substance: INSULIN DETEMIR
     Indication: DIABETES MELLITUS
     Route: 058
     Dates: start: 20140821, end: 20140912
  23. DECADRON [Concomitant]
     Active Substance: DEXAMETHASONE
     Indication: PREMEDICATION
     Route: 048
     Dates: start: 20140822, end: 20140827
  24. LORAZEPAM. [Concomitant]
     Active Substance: LORAZEPAM
     Indication: NAUSEA
     Dosage: 1-MG-ONCE
     Route: 042
     Dates: start: 20140820, end: 20140820
  25. PANTOPRAZOLE [Concomitant]
     Active Substance: PANTOPRAZOLE SODIUM
     Indication: GASTROOESOPHAGEAL REFLUX DISEASE
     Route: 048
     Dates: start: 20140820, end: 20140911
  26. ETOPOSIDE. [Concomitant]
     Active Substance: ETOPOSIDE
     Indication: BONE MARROW CONDITIONING REGIMEN
     Route: 042
     Dates: start: 20140821, end: 20140824
  27. PERICAL [Concomitant]
     Indication: HYPOALBUMINAEMIA
  28. AMBIEN [Concomitant]
     Active Substance: ZOLPIDEM TARTRATE
     Indication: INSOMNIA
     Dosage: 5-MG-QHS PRN
     Route: 048
     Dates: start: 20140902, end: 20140902
  29. CARMUSTINE [Concomitant]
     Active Substance: CARMUSTINE
     Indication: BONE MARROW CONDITIONING REGIMEN
     Dosage: 630-MG-ONCE
     Route: 042
     Dates: start: 20140820, end: 20140820
  30. PLACEBO [Suspect]
     Active Substance: UNSPECIFIED INGREDIENT
     Indication: PROPHYLAXIS
     Dosage: 1 TABLET, ONCE DAILY
     Route: 048
     Dates: start: 20140821, end: 20140926
  31. FLUCONAZOLE. [Concomitant]
     Active Substance: FLUCONAZOLE
     Indication: INFECTION PROPHYLAXIS
     Route: 048
     Dates: start: 20140820, end: 20140825
  32. CLONIDINE. [Concomitant]
     Active Substance: CLONIDINE
     Indication: HYPERTENSION
     Dosage: 0.1-MG-PRN Q6HRS
     Route: 048
     Dates: start: 20121126
  33. LEVAQUIN [Concomitant]
     Active Substance: LEVOFLOXACIN
     Indication: BONE MARROW CONDITIONING REGIMEN
     Route: 048
     Dates: start: 20140820, end: 20140904
  34. EMEND [Concomitant]
     Active Substance: APREPITANT
     Indication: NAUSEA
     Dosage: 150-MG-ONCE
     Route: 042
     Dates: start: 20140820, end: 20140820
  35. LORAZEPAM. [Concomitant]
     Active Substance: LORAZEPAM
     Indication: PREMEDICATION
     Dosage: 1-MG-ONCE
     Route: 042
     Dates: start: 20140827, end: 20140827
  36. HYDROCORTISONE. [Concomitant]
     Active Substance: HYDROCORTISONE
     Indication: PREMEDICATION
     Dosage: 50-MG-ONCE
     Route: 042
     Dates: start: 20140827, end: 20140827
  37. PHENERGAN [Concomitant]
     Active Substance: PROMETHAZINE HYDROCHLORIDE
     Indication: NAUSEA
     Dosage: 12.5-MG-Q4H PRN
     Route: 042
     Dates: start: 20140829, end: 20140907
  38. CYTARABINE. [Concomitant]
     Active Substance: CYTARABINE
     Indication: BONE MARROW CONDITIONING REGIMEN
     Route: 042
     Dates: start: 20140821, end: 20140824
  39. POTASSIUM CHLORIDE. [Concomitant]
     Active Substance: POTASSIUM CHLORIDE
     Indication: HYPOKALAEMIA
     Route: 050
     Dates: start: 20140820
  40. PERICAL [Concomitant]
     Indication: DECREASED APPETITE
     Dosage: 3.5-PERCENT-CONTINUOUS INFUSION 3 X WEEK
     Route: 042
     Dates: start: 20140831, end: 20140904

REACTIONS (4)
  - Septic shock [Recovered/Resolved]
  - Hypotension [Recovered/Resolved]
  - Febrile neutropenia [Recovered/Resolved]
  - Staphylococcal bacteraemia [Recovered/Resolved]

NARRATIVE: CASE EVENT DATE: 20140903
